FAERS Safety Report 7642937-6 (Version None)
Quarter: 2011Q3

REPORT INFORMATION
  Report Type: 
  Country: None (occurrence: None)
  Receive Date: 20110728
  Receipt Date: 20110412
  Transmission Date: 20111222
  Serious: No
  Sender: FDA-Public Use
  Company Number: US-BAYER-2011-032304

PATIENT
  Age: 69 Year
  Sex: Male

DRUGS (2)
  1. AZITHROMYCIN [Suspect]
     Dosage: UNK
  2. CIPROFLOXACIN HCL [Suspect]
     Indication: SINUSITIS
     Dosage: 500 MG, BID
     Route: 048
     Dates: start: 20110412

REACTIONS (1)
  - NAUSEA [None]
